FAERS Safety Report 5103675-7 (Version None)
Quarter: 2006Q3

REPORT INFORMATION
  Report Type: 
  Country: None (occurrence: None)
  Receive Date: 20060911
  Receipt Date: 20060911
  Transmission Date: 20061208
  Serious: Yes (Other)
  Sender: FDA-Public Use
  Company Number: None

PATIENT
  Age: 43 Year
  Sex: Female
  Weight: 55.3388 kg

DRUGS (4)
  1. ESTRADIOL [Suspect]
     Indication: HYSTERECTOMY
     Dosage: 1 PATCH PNCE A WEEK TRANSDERMAL
     Route: 062
     Dates: start: 20060604, end: 20060701
  2. ESTRADIOL [Suspect]
     Indication: MENOPAUSAL SYMPTOMS
     Dosage: 1 PATCH PNCE A WEEK TRANSDERMAL
     Route: 062
     Dates: start: 20060604, end: 20060701
  3. CLIMARA [Suspect]
     Indication: HYSTERECTOMY
     Dosage: 1 PATCH ONCE A WEEK TRANSDERMAL
     Route: 062
     Dates: start: 20060702, end: 20060910
  4. CLIMARA [Suspect]
     Indication: MENOPAUSAL SYMPTOMS
     Dosage: 1 PATCH ONCE A WEEK TRANSDERMAL
     Route: 062
     Dates: start: 20060702, end: 20060910

REACTIONS (6)
  - HOT FLUSH [None]
  - INCORRECT DOSE ADMINISTERED [None]
  - INSOMNIA [None]
  - NIGHT SWEATS [None]
  - PHARMACEUTICAL PRODUCT COMPLAINT [None]
  - THERAPEUTIC RESPONSE UNEXPECTED WITH DRUG SUBSTITUTION [None]
